FAERS Safety Report 4688919-8 (Version None)
Quarter: 2005Q2

REPORT INFORMATION
  Report Type: 
  Country: None (occurrence: None)
  Receive Date: 20050613
  Receipt Date: 20050404
  Transmission Date: 20051028
  Serious: Yes (Life-Threatening, Other)
  Sender: FDA-Public Use
  Company Number: DE-BOEHRINGER INGELHEIM PHARMACEUTICALS, INC.-2005-DE-01294DE

PATIENT
  Age: 69 Year
  Sex: Male

DRUGS (5)
  1. ALNA [Suspect]
     Route: 048
     Dates: start: 20050101, end: 20050313
  2. METOPROLOL SUCCINATE [Concomitant]
  3. ASS 100 [Concomitant]
  4. SORTIS [Concomitant]
  5. OXAZEPAM [Concomitant]

REACTIONS (5)
  - CHEST PAIN [None]
  - CHILLS [None]
  - DYSPNOEA [None]
  - HYPERHIDROSIS [None]
  - PULSE ABSENT [None]
